FAERS Safety Report 5900380-1 (Version None)
Quarter: 2008Q3

REPORT INFORMATION
  Report Type: 
  Country: None (occurrence: None)
  Receive Date: 20080926
  Receipt Date: 20080916
  Transmission Date: 20090109
  Serious: Yes (Other)
  Sender: FDA-Public Use
  Company Number: US-PFIZER INC-2007102296

PATIENT
  Sex: Female

DRUGS (6)
  1. NEURONTIN [Suspect]
     Indication: NEUROPATHY PERIPHERAL
  2. GABAPENTIN [Suspect]
     Indication: NEUROPATHY PERIPHERAL
     Route: 048
  3. VALIUM [Concomitant]
     Dosage: DAILY DOSE:60MG
  4. CYMBALTA [Concomitant]
  5. COZAAR [Concomitant]
  6. COGENTIN [Concomitant]

REACTIONS (13)
  - ALOPECIA [None]
  - BLOOD PRESSURE INCREASED [None]
  - EYELID OEDEMA [None]
  - FLATULENCE [None]
  - PAIN [None]
  - PRURITUS [None]
  - RASH [None]
  - RECTAL DISCHARGE [None]
  - SOMNOLENCE [None]
  - SWELLING FACE [None]
  - THERMAL BURN [None]
  - TOOTH INFECTION [None]
  - URTICARIA [None]
